FAERS Safety Report 16346785 (Version 1)
Quarter: 2019Q2

REPORT INFORMATION
  Report Type: Spontaneous
  Country: CN (occurrence: CN)
  Receive Date: 20190523
  Receipt Date: 20190523
  Transmission Date: 20190711
  Serious: Yes (Hospitalization)
  Sender: FDA-Public Use
  Company Number: CN-BAYER-2019-095263

PATIENT
  Age: 46 Year
  Sex: Male

DRUGS (1)
  1. MOXIFLOXACIN ORAL [Suspect]
     Active Substance: MOXIFLOXACIN
     Indication: UPPER RESPIRATORY TRACT INFECTION
     Dosage: 1200 MG
     Route: 048
     Dates: start: 20160729

REACTIONS (3)
  - Product use in unapproved indication [None]
  - Acute myocardial infarction [Recovered/Resolved]
  - Overdose [None]

NARRATIVE: CASE EVENT DATE: 20160729
